FAERS Safety Report 6383791-2 (Version None)
Quarter: 2009Q4

REPORT INFORMATION
  Report Type: 
  Country: None (occurrence: None)
  Receive Date: 20091001
  Receipt Date: 20090922
  Transmission Date: 20100525
  Serious: Yes (Other)
  Sender: FDA-Public Use
  Company Number: US-JNJFOC-20090906935

PATIENT

DRUGS (1)
  1. TAPENTADOL HYDROCHLORIDE [Suspect]
     Indication: POST LAMINECTOMY SYNDROME
     Dosage: 4-6 PER DAY
     Route: 048

REACTIONS (1)
  - HALLUCINATION [None]
